FAERS Safety Report 20020741 (Version 1)
Quarter: 2021Q4

REPORT INFORMATION
  Report Type: Spontaneous
  Country: None (occurrence: US)
  Receive Date: 20211101
  Receipt Date: 20211101
  Transmission Date: 20220303
  Serious: Yes (Hospitalization, Other)
  Sender: FDA-Public Use
  Company Number: US-Acella Pharmaceuticals, LLC-2121296

PATIENT
  Age: 42 Year
  Sex: Male

DRUGS (3)
  1. BROMPHENIRAMINE MAL, PSEUDOEPHEDRINE HCL, AND DEXTROMETHORPHAN HBR [Suspect]
     Active Substance: BROMPHENIRAMINE MALEATE\DEXTROMETHORPHAN HYDROBROMIDE\PSEUDOEPHEDRINE HYDROCHLORIDE
     Indication: Cough
     Route: 065
  2. TRAZODONE [Concomitant]
     Active Substance: TRAZODONE HYDROCHLORIDE
     Route: 065
  3. TRIAMCINOLONE ACETONIDE [Concomitant]
     Active Substance: TRIAMCINOLONE ACETONIDE
     Route: 061

REACTIONS (7)
  - Pneumomediastinum [Unknown]
  - Toxicity to various agents [Unknown]
  - Aggression [Unknown]
  - Parasomnia [Unknown]
  - Suicide attempt [Unknown]
  - Fear [Unknown]
  - Insomnia [Unknown]
